FAERS Safety Report 4836908-2 (Version None)
Quarter: 2005Q4

REPORT INFORMATION
  Report Type: 
  Country: None (occurrence: None)
  Receive Date: 20051123
  Receipt Date: 20051003
  Transmission Date: 20060501
  Serious: Yes (Hospitalization, Other)
  Sender: FDA-Public Use
  Company Number: US-MERCK-0510USA02480

PATIENT
  Age: 51 Year
  Sex: Female
  Weight: 111 kg

DRUGS (2)
  1. VIOXX [Suspect]
     Indication: ARTHRALGIA
     Route: 048
     Dates: start: 20000101, end: 20030901
  2. VIOXX [Suspect]
     Route: 048
     Dates: start: 20000101, end: 20030901

REACTIONS (18)
  - ANGINA UNSTABLE [None]
  - BULIMIA NERVOSA [None]
  - CARDIAC DISORDER [None]
  - CARPAL TUNNEL SYNDROME [None]
  - CHEST PAIN [None]
  - COMPLETED SUICIDE [None]
  - CORONARY ARTERY DISEASE [None]
  - DEPRESSION [None]
  - DYSPNOEA EXERTIONAL [None]
  - INCISION SITE COMPLICATION [None]
  - LYMPHADENOPATHY [None]
  - MUSCULOSKELETAL CHEST PAIN [None]
  - MYOCARDIAL INFARCTION [None]
  - PHARYNGOLARYNGEAL PAIN [None]
  - PRURITUS [None]
  - RASH GENERALISED [None]
  - SUICIDAL IDEATION [None]
  - WEIGHT INCREASED [None]
